FAERS Safety Report 10527045 (Version 1)
Quarter: 2014Q4

REPORT INFORMATION
  Report Type: Spontaneous
  Country: US (occurrence: None)
  Receive Date: 20141016
  Receipt Date: 20141016
  Transmission Date: 20150528
  Serious: Yes (Life-Threatening)
  Sender: FDA-Public Use
  Company Number: USW201410-000230

PATIENT

DRUGS (1)
  1. DANTROLENE SODIUM. [Suspect]
     Active Substance: DANTROLENE SODIUM
     Indication: MUSCLE SPASTICITY

REACTIONS (2)
  - Respiratory failure [None]
  - Off label use [None]
